FAERS Safety Report 8887227 (Version 1)
Quarter: 2012Q4

REPORT INFORMATION
  Report Type: 
  Country: DE (occurrence: DE)
  Receive Date: 20121105
  Receipt Date: 20121105
  Transmission Date: 20130627
  Serious: Yes (Hospitalization)
  Sender: FDA-Public Use
  Company Number: DE-TEVA-366876GER

PATIENT
  Age: 65 Year
  Sex: Female

DRUGS (11)
  1. MYCOPHENOLATE MOFETIL [Suspect]
     Indication: IMMUNOSUPPRESSANT DRUG THERAPY
     Dosage: 2 Gram Daily;
     Route: 065
     Dates: start: 200907
  2. PREDNISOLONE [Suspect]
     Indication: IMMUNOSUPPRESSANT DRUG THERAPY
     Dosage: 5 Milligram Daily;
     Route: 065
     Dates: start: 200907
  3. CICLOPIROX [Suspect]
     Indication: ALTERNARIA INFECTION
     Dosage: Twice daily; occlusive dressing
     Route: 061
  4. METHYLPREDNISOLONE [Suspect]
     Indication: IMMUNOSUPPRESSANT DRUG THERAPY
     Route: 065
     Dates: start: 200907, end: 200909
  5. METHYLPREDNISOLONE [Suspect]
     Indication: KIDNEY TRANSPLANT REJECTION
     Dosage: 250mg for 5 days
     Route: 040
     Dates: start: 200907, end: 200909
  6. ANTITHYMOCYTE IMMUNOGLOBULIN [Suspect]
     Indication: IMMUNOSUPPRESSANT DRUG THERAPY
     Route: 065
     Dates: start: 200907
  7. TACROLIMUS [Interacting]
     Indication: IMMUNOSUPPRESSANT DRUG THERAPY
     Route: 065
     Dates: start: 200907
  8. VORICONAZOLE [Interacting]
     Indication: ALTERNARIA INFECTION
     Dosage: 200 Milligram Daily;
     Route: 065
  9. CANCIDAS [Suspect]
     Indication: ALTERNARIA INFECTION
     Route: 042
  10. CANCIDAS [Suspect]
     Indication: ALTERNARIA INFECTION
     Dosage: 50 mg/day
     Route: 065
  11. MYSTECLIN F [Suspect]
     Indication: ALTERNARIA INFECTION
     Dosage: Four times daily; occlusive dressing
     Route: 061

REACTIONS (13)
  - Alternaria infection [Recovered/Resolved]
  - Blood creatine increased [Unknown]
  - Drug interaction [Recovered/Resolved]
  - Leukopenia [Recovered/Resolved]
  - Headache [Recovered/Resolved]
  - Abdominal pain [Recovered/Resolved]
  - Arthralgia [Recovered/Resolved]
  - Nausea [Recovered/Resolved]
  - Pruritus [Recovered/Resolved]
  - Paraesthesia [Recovered/Resolved]
  - Hot flush [Recovered/Resolved]
  - Freezing phenomenon [Recovered/Resolved]
  - Erythema [Recovered/Resolved]
